FAERS Safety Report 8821255 (Version 1)
Quarter: 2012Q4

REPORT INFORMATION
  Report Type: 
  Country: US (occurrence: US)
  Receive Date: 20121002
  Receipt Date: 20121002
  Transmission Date: 20130627
  Serious: Yes (Hospitalization, Other)
  Sender: FDA-Public Use
  Company Number: US-TEVA-356547USA

PATIENT
  Age: 70 Year
  Sex: Female

DRUGS (1)
  1. BUDESONIDE [Suspect]
     Route: 055

REACTIONS (2)
  - Bronchospasm paradoxical [Recovered/Resolved with Sequelae]
  - Respiratory distress [Recovered/Resolved with Sequelae]
